FAERS Safety Report 7759888-9 (Version None)
Quarter: 2011Q3

REPORT INFORMATION
  Report Type: 
  Country: None (occurrence: None)
  Receive Date: 20110919
  Receipt Date: 20110914
  Transmission Date: 20111222
  Serious: Yes (Hospitalization)
  Sender: FDA-Public Use
  Company Number: IT-MERCK-1109ITA00021

PATIENT
  Age: 70 Year
  Sex: Female

DRUGS (6)
  1. VYTORIN [Suspect]
     Indication: HYPERCHOLESTEROLAEMIA
     Route: 048
     Dates: start: 20100101, end: 20110503
  2. PAROXETINE [Suspect]
     Indication: MAJOR DEPRESSION
     Route: 048
     Dates: start: 20110423, end: 20110503
  3. FEXOFENADINE HCL [Suspect]
     Indication: HYPERSENSITIVITY
     Route: 048
     Dates: start: 20100101, end: 20110503
  4. DELORAZEPAM [Suspect]
     Indication: MAJOR DEPRESSION
     Route: 048
     Dates: start: 20100101, end: 20100503
  5. ATENOLOL [Suspect]
     Indication: SECONDARY HYPERTENSION
     Route: 048
     Dates: start: 20100101, end: 20100503
  6. HYDROCHLOROTHIAZIDE AND RAMIPRIL [Suspect]
     Indication: ESSENTIAL HYPERTENSION
     Route: 048
     Dates: start: 20100101, end: 20100503

REACTIONS (6)
  - RETROGRADE AMNESIA [None]
  - SOPOR [None]
  - AGITATION [None]
  - DISORIENTATION [None]
  - BRADYPHRENIA [None]
  - ABNORMAL BEHAVIOUR [None]
